FAERS Safety Report 18818187 (Version 3)
Quarter: 2021Q1

REPORT INFORMATION
  Report Type: Spontaneous
  Country: US (occurrence: US)
  Receive Date: 20210201
  Receipt Date: 20210226
  Transmission Date: 20210419
  Serious: Yes (Hospitalization, Other)
  Sender: FDA-Public Use
  Company Number: NVSC2021US018075

PATIENT
  Age: 58 Year
  Sex: Female

DRUGS (9)
  1. PROPRANOLOL [Concomitant]
     Active Substance: PROPRANOLOL HYDROCHLORIDE
     Indication: PRODUCT USED FOR UNKNOWN INDICATION
     Route: 065
  2. RECLAST [Suspect]
     Active Substance: ZOLEDRONIC ACID
     Indication: METASTASES TO BONE
  3. RECLAST [Suspect]
     Active Substance: ZOLEDRONIC ACID
     Indication: SENILE OSTEOPOROSIS
  4. LEVOTHYROXINE. [Concomitant]
     Active Substance: LEVOTHYROXINE
     Indication: PRODUCT USED FOR UNKNOWN INDICATION
     Dosage: 25 MG
     Route: 065
  5. RECLAST [Suspect]
     Active Substance: ZOLEDRONIC ACID
     Indication: OSTEOPOROSIS
     Dosage: 4 MG, UNKNOWN (INTO BLOODSTREAM VIA VEIN)
     Route: 042
     Dates: start: 20201214
  6. NEXIUM [Concomitant]
     Active Substance: ESOMEPRAZOLE MAGNESIUM
     Indication: PRODUCT USED FOR UNKNOWN INDICATION
     Route: 065
  7. BENADRYL [Concomitant]
     Active Substance: DIPHENHYDRAMINE HYDROCHLORIDE
     Indication: PRODUCT USED FOR UNKNOWN INDICATION
     Route: 065
  8. SALINE [Concomitant]
     Active Substance: SODIUM CHLORIDE
     Indication: PRODUCT USED FOR UNKNOWN INDICATION
     Route: 065
  9. TYLENOL [Concomitant]
     Active Substance: ACETAMINOPHEN
     Indication: PREMEDICATION
     Dosage: 1000 MG, UNKNOWN
     Route: 065
     Dates: start: 20201214

REACTIONS (10)
  - Dysphonia [Unknown]
  - Gastrooesophageal reflux disease [Recovering/Resolving]
  - Weight decreased [Recovering/Resolving]
  - Dysphagia [Not Recovered/Not Resolved]
  - Urticaria [Unknown]
  - Erythema [Unknown]
  - Oesophagitis [Unknown]
  - Gastritis [Recovering/Resolving]
  - Pain [Recovering/Resolving]
  - Anxiety [Unknown]

NARRATIVE: CASE EVENT DATE: 20201231
